FAERS Safety Report 4357512-9 (Version None)
Quarter: 2004Q2

REPORT INFORMATION
  Report Type: 
  Country: None (occurrence: None)
  Receive Date: 20040506
  Receipt Date: 20040503
  Transmission Date: 20050107
  Serious: Yes (Other)
  Sender: FDA-Public Use
  Company Number: 2004211446US

PATIENT

DRUGS (2)
  1. DEPO-MEDROL [Suspect]
     Indication: ARTHROPOD STING
     Dates: start: 19950101
  2. BENADRYL [Concomitant]

REACTIONS (2)
  - INJECTION SITE DISCOLOURATION [None]
  - MALIGNANT MELANOMA [None]
